FAERS Safety Report 9788642 (Version 1)
Quarter: 2013Q4

REPORT INFORMATION
  Report Type: Spontaneous
  Country: DK (occurrence: FR)
  Receive Date: 20131230
  Receipt Date: 20131230
  Transmission Date: 20140711
  Serious: Yes (Other)
  Sender: FDA-Public Use
  Company Number: FR-FRI-1000052448

PATIENT
  Sex: Male

DRUGS (1)
  1. ESCITALOPRAM [Suspect]

REACTIONS (1)
  - Myocarditis [Unknown]
